FAERS Safety Report 5117644-4 (Version None)
Quarter: 2006Q3

REPORT INFORMATION
  Report Type: 
  Country: None (occurrence: None)
  Receive Date: 20060928
  Receipt Date: 20060928
  Transmission Date: 20061208
  Serious: Yes (Hospitalization, Disabling)
  Sender: FDA-Public Use
  Company Number: None

PATIENT
  Sex: Female
  Weight: 50.3 kg

DRUGS (5)
  1. DOXORUBICIN LIPOSOMAL INJECTION - ORTHO BIOTECH [Suspect]
     Indication: DESMOID TUMOUR
     Dosage: 40MG/M2 (60 MG) Q 3 WKS IV
     Route: 042
     Dates: start: 20060720
  2. DOXORUBICIN LIPOSOMAL INJECTION - ORTHO BIOTECH [Suspect]
     Indication: DESMOID TUMOUR
     Dosage: 40MG/M2 (60 MG) Q 3 WKS IV
     Route: 042
     Dates: start: 20060920
  3. ONDANSETRON [Concomitant]
  4. DEXAMETHASONE TAB [Concomitant]
  5. PEPCID [Concomitant]

REACTIONS (1)
  - MYELITIS TRANSVERSE [None]
